FAERS Safety Report 4968850-0 (Version None)
Quarter: 2006Q2

REPORT INFORMATION
  Report Type: 
  Country: None (occurrence: None)
  Receive Date: 20060411
  Receipt Date: 20060330
  Transmission Date: 20061013
  Serious: Yes (Hospitalization)
  Sender: FDA-Public Use
  Company Number: PHEH2006US04284

PATIENT
  Age: 83 Year
  Sex: Female

DRUGS (6)
  1. EXJADE [Suspect]
     Indication: BLOOD IRON INCREASED
     Dosage: 1250 MG, QD
     Dates: start: 20060104
  2. ASPIRIN [Concomitant]
     Dosage: 325 MG, QD
  3. IPRATROPIUM BROMIDE W/SALBUTAMOL [Concomitant]
     Dosage: 2 PUFFS, TID
  4. LASIX [Concomitant]
     Dosage: 20 MG, QD
  5. LOPRESSOR [Concomitant]
     Dosage: 25 MG, QD
  6. POTASSIUM [Concomitant]
     Dosage: 20 EQ, UNK

REACTIONS (13)
  - ATELECTASIS [None]
  - BLOOD UREA INCREASED [None]
  - CARDIAC FAILURE CONGESTIVE [None]
  - CHEST PAIN [None]
  - DEHYDRATION [None]
  - DYSPHAGIA [None]
  - OEDEMA PERIPHERAL [None]
  - OESOPHAGEAL ULCER [None]
  - OESOPHAGITIS [None]
  - ORAL CANDIDIASIS [None]
  - PLEURAL EFFUSION [None]
  - PULMONARY CONGESTION [None]
  - PULMONARY VASCULAR DISORDER [None]
